FAERS Safety Report 24618448 (Version 8)
Quarter: 2025Q1

REPORT INFORMATION
  Report Type: Report from Study
  Country: US (occurrence: US)
  Receive Date: 20241114
  Receipt Date: 20250207
  Transmission Date: 20250409
  Serious: Yes (Other)
  Sender: TAKEDA
  Company Number: US-TAKEDA-2024TUS114511

PATIENT
  Sex: Male
  Weight: 80 kg

DRUGS (4)
  1. TEDUGLUTIDE [Suspect]
     Active Substance: TEDUGLUTIDE
     Indication: Short-bowel syndrome
     Dosage: 0.41 MILLIGRAM, QD
     Dates: start: 20241112
  2. TEDUGLUTIDE [Suspect]
     Active Substance: TEDUGLUTIDE
     Indication: Neurotrophic keratopathy
     Dosage: 0.41 MILLILITER, QD
  3. TEDUGLUTIDE [Suspect]
     Active Substance: TEDUGLUTIDE
  4. TEDUGLUTIDE [Suspect]
     Active Substance: TEDUGLUTIDE

REACTIONS (21)
  - Leukaemia [Unknown]
  - Lymphoma [Unknown]
  - Nephrolithiasis [Unknown]
  - Malnutrition [Unknown]
  - Dehydration [Unknown]
  - Incorrect dose administered [Unknown]
  - Malaise [Unknown]
  - Feeling abnormal [Unknown]
  - Drug intolerance [Unknown]
  - Depression [Unknown]
  - Gastrointestinal disorder [Unknown]
  - Asthenia [Unknown]
  - Impaired quality of life [Unknown]
  - Device intolerance [Unknown]
  - Pain [Unknown]
  - Gastrointestinal motility disorder [Unknown]
  - Drug ineffective [Unknown]
  - Product use in unapproved indication [Unknown]
  - Decreased appetite [Unknown]
  - Abdominal pain upper [Unknown]
  - Abdominal pain [Unknown]
